FAERS Safety Report 6249692-5 (Version None)
Quarter: 2009Q2

REPORT INFORMATION
  Report Type: 
  Country: None (occurrence: None)
  Receive Date: 20090629
  Receipt Date: 20090616
  Transmission Date: 20091009
  Serious: Yes (Disabling, Other)
  Sender: FDA-Public Use
  Company Number: GB-MYLANLABS-2009S1010673

PATIENT
  Age: 43 Year
  Sex: Female

DRUGS (1)
  1. DOXYCYCLINE [Suspect]
     Indication: PROPHYLAXIS
     Route: 048
     Dates: start: 20081204, end: 20081211

REACTIONS (2)
  - DERMATITIS BULLOUS [None]
  - PRURITUS [None]
